FAERS Safety Report 23816998 (Version 1)
Quarter: 2024Q2

REPORT INFORMATION
  Report Type: Spontaneous
  Country: FR (occurrence: FR)
  Receive Date: 20240504
  Receipt Date: 20240504
  Transmission Date: 20240716
  Serious: Yes (Other)
  Sender: FDA-Public Use
  Company Number: FR-AFSSAPS-AVNY2024000095

PATIENT
  Age: 17 Year
  Sex: Female
  Weight: 44 kg

DRUGS (3)
  1. ALPRAZOLAM [Suspect]
     Active Substance: ALPRAZOLAM
     Indication: Product used for unknown indication
     Dosage: 0.25 MILLIGRAM, ONCE A DAY
     Route: 048
     Dates: end: 20240314
  2. ALPRAZOLAM [Suspect]
     Active Substance: ALPRAZOLAM
     Dosage: 0.75 MILLIGRAM (1 CP ? 9 H, 1CP ? 1)0H30, 1CP ? 11 H
     Route: 048
     Dates: start: 20240315, end: 20240315
  3. Melatonine arrow [Concomitant]
     Indication: Product used for unknown indication
     Dosage: UNK
     Route: 065

REACTIONS (1)
  - Drug use disorder [Recovering/Resolving]

NARRATIVE: CASE EVENT DATE: 20240315
